FAERS Safety Report 5146902-2 (Version None)
Quarter: 2006Q4

REPORT INFORMATION
  Report Type: 
  Country: None (occurrence: None)
  Receive Date: 20061109
  Receipt Date: 20060724
  Transmission Date: 20070319
  Serious: Yes (Hospitalization)
  Sender: FDA-Public Use
  Company Number: US-GILEAD-2006-0009915

PATIENT
  Sex: Male
  Weight: 45.854 kg

DRUGS (1)
  1. HEPSERA [Suspect]
     Indication: HEPATITIS B
     Route: 048
     Dates: start: 20041102, end: 20060821

REACTIONS (5)
  - ARRHYTHMIA [None]
  - GASTROINTESTINAL MOTILITY DISORDER [None]
  - HYPERTROPHIC CARDIOMYOPATHY [None]
  - LOWER LIMB FRACTURE [None]
  - MYOCARDIAL FIBROSIS [None]
